FAERS Safety Report 19752533 (Version 1)
Quarter: 2021Q3

REPORT INFORMATION
  Report Type: Spontaneous
  Country: AU (occurrence: AU)
  Receive Date: 20210827
  Receipt Date: 20210827
  Transmission Date: 20211014
  Serious: Yes (Other)
  Sender: FDA-Public Use
  Company Number: AU-009507513-2108AUS005713

PATIENT
  Age: 33 Year
  Sex: Female

DRUGS (3)
  1. HYDROXYUREA. [Suspect]
     Active Substance: HYDROXYUREA
  2. TAMOXIFEN [Suspect]
     Active Substance: TAMOXIFEN
     Indication: MENINGIOMA MALIGNANT
     Dosage: UNK
     Route: 048
  3. TEMOZOLOMIDE. [Suspect]
     Active Substance: TEMOZOLOMIDE
     Dosage: UNK

REACTIONS (2)
  - General physical health deterioration [Unknown]
  - Multiple-drug resistance [Unknown]
